FAERS Safety Report 6830693-0 (Version None)
Quarter: 2010Q3

REPORT INFORMATION
  Report Type: 
  Country: None (occurrence: None)
  Receive Date: 20100712
  Receipt Date: 20100628
  Transmission Date: 20110219
  Serious: Yes (Other)
  Sender: FDA-Public Use
  Company Number: US-BAYER-201026640NA

PATIENT
  Age: 32 Year
  Sex: Female

DRUGS (1)
  1. YAZ [Suspect]
     Indication: PRODUCT USED FOR UNKNOWN INDICATION
     Route: 048
     Dates: start: 20070601, end: 20091201

REACTIONS (4)
  - ABDOMINAL PAIN [None]
  - CHOLELITHIASIS [None]
  - NAUSEA [None]
  - VOMITING [None]
